FAERS Safety Report 21445072 (Version 4)
Quarter: 2022Q4

REPORT INFORMATION
  Report Type: Spontaneous
  Country: US (occurrence: US)
  Receive Date: 20221012
  Receipt Date: 20221221
  Transmission Date: 20230113
  Serious: Yes (Hospitalization)
  Sender: FDA-Public Use
  Company Number: US-ABBVIE-4151284

PATIENT
  Age: 71 Year
  Sex: Male

DRUGS (4)
  1. VENCLEXTA [Suspect]
     Active Substance: VENETOCLAX
     Indication: Acute myeloid leukaemia
     Dosage: 100 MILLIGRAM?FORM STRENGTH- 100 MILLIGRAM
     Route: 048
     Dates: start: 20221001, end: 20221001
  2. VENCLEXTA [Suspect]
     Active Substance: VENETOCLAX
     Indication: Acute myeloid leukaemia
     Dosage: 200 MILLIGRAM?FORM STRENGTH- 100 MILLIGRAM
     Route: 048
     Dates: start: 20221002, end: 20221002
  3. VENCLEXTA [Suspect]
     Active Substance: VENETOCLAX
     Indication: Acute myeloid leukaemia
     Dosage: 400 MILLIGRAM?FORM STRENGTH- 100 MILLIGRAM
     Route: 048
     Dates: start: 20221003
  4. AZACITIDINE [Concomitant]
     Active Substance: AZACITIDINE
     Indication: Acute myeloid leukaemia
     Dosage: 136 MILLIGRAM
     Dates: start: 20221001, end: 20221008

REACTIONS (4)
  - Tuberculosis [Not Recovered/Not Resolved]
  - Lung consolidation [Unknown]
  - Drug interaction [Unknown]
  - Intentional product misuse [Unknown]

NARRATIVE: CASE EVENT DATE: 20221001
